FAERS Safety Report 6545738-5 (Version None)
Quarter: 2010Q1

REPORT INFORMATION
  Report Type: 
  Country: None (occurrence: None)
  Receive Date: 20100121
  Receipt Date: 20100113
  Transmission Date: 20100710
  Serious: Yes (Hospitalization, Other)
  Sender: FDA-Public Use
  Company Number: BR-ABBOTT-09P-020-0610242-00

PATIENT
  Sex: Female
  Weight: 59 kg

DRUGS (3)
  1. HUMIRA [Suspect]
     Indication: CROHN'S DISEASE
     Dosage: INDUCTION 80MG EVERY 15 DAYS, IN THE 4 INITIAL INJECTIONS
     Route: 058
     Dates: start: 20090415, end: 20091124
  2. HUMIRA [Suspect]
     Dates: start: 20091225
  3. MESALAZINE [Concomitant]
     Indication: CROHN'S DISEASE
     Route: 048
     Dates: start: 20070905

REACTIONS (2)
  - FLATULENCE [None]
  - GASTROINTESTINAL OEDEMA [None]
